FAERS Safety Report 9397938 (Version 1)
Quarter: 2013Q3

REPORT INFORMATION
  Report Type: Spontaneous
  Country: US (occurrence: US)
  Receive Date: 20130712
  Receipt Date: 20130712
  Transmission Date: 20140515
  Serious: Yes (Life-Threatening, Hospitalization, Congenital Anomaly)
  Sender: FDA-Public Use
  Company Number: US-GLAXOSMITHKLINE-A0640665A

PATIENT
  Age: 1 Month
  Sex: Male
  Weight: 3.4 kg

DRUGS (7)
  1. PAXIL CR [Suspect]
     Indication: ANXIETY
     Dosage: 12.5MG PER DAY
     Route: 064
     Dates: start: 20031113
  2. PAROXETINE HYDROCHLORIDE [Suspect]
     Indication: ANXIETY
     Dosage: 10MG PER DAY
     Route: 064
     Dates: start: 200503, end: 200505
  3. NATALCARE PLUS [Concomitant]
     Indication: PREGNANCY
     Route: 064
     Dates: start: 200505, end: 200510
  4. TYLENOL COLD [Concomitant]
     Indication: NASOPHARYNGITIS
     Dosage: 2CAP AS REQUIRED
     Route: 064
     Dates: start: 2001
  5. IBUPROFEN [Concomitant]
     Indication: PAIN
     Dosage: 2CAP AS REQUIRED
     Route: 064
  6. ZOFRAN [Concomitant]
     Indication: NAUSEA
     Route: 064
     Dates: start: 20050301, end: 20050311
  7. ALPRAZOLAM [Concomitant]
     Route: 064

REACTIONS (15)
  - Coarctation of the aorta [Unknown]
  - Persistent foetal circulation [Unknown]
  - Atrial septal defect [Unknown]
  - Atrial septal defect [Unknown]
  - Ventricular septal defect [Unknown]
  - Interruption of aortic arch [Unknown]
  - Patent ductus arteriosus [Unknown]
  - Colitis ischaemic [Unknown]
  - Chronic respiratory failure [Unknown]
  - Pain [Unknown]
  - Lung disorder [Unknown]
  - Injury [Unknown]
  - Developmental delay [Unknown]
  - Congenital heart valve disorder [Unknown]
  - Foetal exposure during pregnancy [Unknown]
